FAERS Safety Report 5731381-4 (Version None)
Quarter: 2008Q2

REPORT INFORMATION
  Report Type: 
  Country: None (occurrence: None)
  Receive Date: 20080508
  Receipt Date: 20080428
  Transmission Date: 20081010
  Serious: Yes (Hospitalization, Other)
  Sender: FDA-Public Use
  Company Number: US-JNJFOC-20080407666

PATIENT
  Sex: Female
  Weight: 54.43 kg

DRUGS (8)
  1. DURAGESIC-100 [Suspect]
     Route: 062
  2. DURAGESIC-100 [Suspect]
     Indication: PAIN
     Route: 062
  3. FENTANYL TRANSDERMAL SYSTEM [Suspect]
     Route: 062
  4. FENTANYL TRANSDERMAL SYSTEM [Suspect]
     Route: 062
  5. FENTANYL TRANSDERMAL SYSTEM [Suspect]
     Indication: PAIN
     Route: 062
  6. METHADONE HCL [Suspect]
     Route: 065
  7. METHADONE HCL [Suspect]
     Indication: PAIN
     Route: 065
  8. SYNTHROID [Concomitant]
     Indication: HYPOTHYROIDISM
     Route: 048

REACTIONS (15)
  - ABNORMAL DREAMS [None]
  - ABORTION SPONTANEOUS [None]
  - ANXIETY [None]
  - BREAKTHROUGH PAIN [None]
  - DEPRESSION [None]
  - DRUG EXPOSURE DURING PREGNANCY [None]
  - FEMALE STERILISATION [None]
  - HALLUCINATION [None]
  - INCORRECT DRUG ADMINISTRATION DURATION [None]
  - PAIN [None]
  - ROAD TRAFFIC ACCIDENT [None]
  - SKIN REACTION [None]
  - SUICIDAL IDEATION [None]
  - UTERINE DILATION AND CURETTAGE [None]
  - WITHDRAWAL SYNDROME [None]
